FAERS Safety Report 23493359 (Version 1)
Quarter: 2024Q1

REPORT INFORMATION
  Report Type: Spontaneous
  Country: SE (occurrence: SE)
  Receive Date: 20240207
  Receipt Date: 20240207
  Transmission Date: 20240410
  Serious: Yes (Other)
  Sender: FDA-Public Use
  Company Number: None

PATIENT
  Age: 31 Year
  Sex: Female

DRUGS (2)
  1. AMOXICILLIN [Suspect]
     Active Substance: AMOXICILLIN
     Indication: Drug provocation test
     Dosage: UNK
     Route: 065
     Dates: start: 202304
  2. CLARITHROMYCIN [Suspect]
     Active Substance: CLARITHROMYCIN
     Indication: Drug provocation test
     Dosage: UNK
     Route: 065
     Dates: start: 202304

REACTIONS (4)
  - Angioedema [Unknown]
  - Ear swelling [Unknown]
  - Paraesthesia oral [Unknown]
  - Rash [Unknown]

NARRATIVE: CASE EVENT DATE: 20230401
